FAERS Safety Report 18739398 (Version 2)
Quarter: 2021Q1

REPORT INFORMATION
  Report Type: Other
  Country: AU (occurrence: AU)
  Receive Date: 20210114
  Receipt Date: 20210218
  Transmission Date: 20210419
  Serious: Yes (Other)
  Sender: FDA-Public Use
  Company Number: AU-ASTELLAS-2021US001221

PATIENT
  Age: 60 Year
  Sex: Male

DRUGS (2)
  1. TACROLIMUS. [Suspect]
     Active Substance: TACROLIMUS
     Indication: ACUTE GRAFT VERSUS HOST DISEASE
     Dosage: UNK, UNKNOWN FREQ.
     Route: 042
  2. CICLOSPORIN [Suspect]
     Active Substance: CYCLOSPORINE
     Indication: ACUTE GRAFT VERSUS HOST DISEASE
     Dosage: UNK UNK, UNKNOWN FREQ.
     Route: 065

REACTIONS (7)
  - Acute graft versus host disease in skin [Unknown]
  - Abdominal pain [Unknown]
  - Graft versus host disease in gastrointestinal tract [Unknown]
  - Diarrhoea [Unknown]
  - Acute graft versus host disease [Unknown]
  - Acute graft versus host disease in liver [Unknown]
  - Nausea [Unknown]
